FAERS Safety Report 22307276 (Version 1)
Quarter: 2023Q2

REPORT INFORMATION
  Report Type: Spontaneous
  Country: US (occurrence: None)
  Receive Date: 20230511
  Receipt Date: 20230511
  Transmission Date: 20230721
  Serious: No
  Sender: FDA-Public Use
  Company Number: US-ROCHE-3105464

PATIENT
  Sex: Female

DRUGS (1)
  1. OCREVUS [Suspect]
     Active Substance: OCRELIZUMAB
     Indication: Myelitis transverse
     Dosage: 600 MG ON EVERY SIX MONTHS?SUBSEQUENT DOSES ON 06/JULY/2021, 06/JULY/2020, 06/JAN/2022, 06/JAN/2021
     Route: 042
     Dates: start: 20200106

REACTIONS (2)
  - Off label use [Unknown]
  - No adverse event [Unknown]
